FAERS Safety Report 8077194-2 (Version None)
Quarter: 2012Q1

REPORT INFORMATION
  Report Type: 
  Country: None (occurrence: None)
  Receive Date: 20120126
  Receipt Date: 20120126
  Transmission Date: 20120608
  Serious: No
  Sender: FDA-Public Use
  Company Number: None

PATIENT
  Sex: Male

DRUGS (1)
  1. RISPERDAL [Suspect]
     Indication: ENCEPHALOPATHY
     Dosage: 1 BID PO
     Route: 048
     Dates: start: 20090101

REACTIONS (3)
  - PRODUCT SUBSTITUTION ISSUE [None]
  - SOCIAL AVOIDANT BEHAVIOUR [None]
  - LETHARGY [None]
